FAERS Safety Report 7406584-3 (Version None)
Quarter: 2011Q2

REPORT INFORMATION
  Report Type: 
  Country: None (occurrence: None)
  Receive Date: 20110411
  Receipt Date: 20110401
  Transmission Date: 20111010
  Serious: Yes (Hospitalization)
  Sender: FDA-Public Use
  Company Number: US-ASTRAZENECA-2011SE18621

PATIENT
  Age: 28589 Day
  Sex: Male
  Weight: 74.8 kg

DRUGS (6)
  1. GLYPIZIDE ER [Concomitant]
     Indication: DIABETES MELLITUS
     Route: 048
  2. PLAVIX [Concomitant]
     Route: 048
  3. CRESTOR [Suspect]
     Indication: HYPERCHOLESTEROLAEMIA
     Route: 048
  4. LISINOPRIL [Concomitant]
     Indication: HYPERTENSION
     Dosage: DAILY
     Route: 048
  5. METFORMIN HCL [Concomitant]
     Indication: DIABETES MELLITUS
     Route: 048
  6. ASPIRIN [Concomitant]
     Route: 048

REACTIONS (3)
  - PRURITUS [None]
  - CARDIAC DISORDER [None]
  - IMPAIRED HEALING [None]
